FAERS Safety Report 6488817-3 (Version None)
Quarter: 2009Q4

REPORT INFORMATION
  Report Type: 
  Country: None (occurrence: None)
  Receive Date: 20091210
  Receipt Date: 20091202
  Transmission Date: 20100525
  Serious: Yes (Other)
  Sender: FDA-Public Use
  Company Number: JP-PFIZER INC-2009305931

PATIENT
  Age: 57 Year
  Sex: Male

DRUGS (2)
  1. NORVASC [Suspect]
     Dosage: UNK
     Route: 048
  2. VALSARTAN [Suspect]
     Route: 048

REACTIONS (1)
  - DEAFNESS [None]
